FAERS Safety Report 9994995 (Version 1)
Quarter: 2014Q1

REPORT INFORMATION
  Report Type: Spontaneous
  Country: US (occurrence: None)
  Receive Date: 20140307
  Receipt Date: 20140307
  Transmission Date: 20141002
  Serious: Yes (Other)
  Sender: FDA-Public Use
  Company Number: None

PATIENT
  Age: 44 Year
  Sex: Female
  Weight: 72.58 kg

DRUGS (4)
  1. AMOXICILLIN/CLAVULANIC ACID [Suspect]
     Indication: SINUSITIS
     Dosage: 1 TABLET
     Route: 048
     Dates: start: 20140219, end: 20140219
  2. ALLEGRA [Concomitant]
  3. FLONASE [Concomitant]
  4. VIT D [Concomitant]

REACTIONS (5)
  - Abdominal pain upper [None]
  - Abdominal pain upper [None]
  - Vomiting [None]
  - Urticaria [None]
  - Lip swelling [None]
